FAERS Safety Report 7749235-0 (Version None)
Quarter: 2011Q3

REPORT INFORMATION
  Report Type: 
  Country: None (occurrence: None)
  Receive Date: 20110914
  Receipt Date: 20110906
  Transmission Date: 20111222
  Serious: Yes (Hospitalization)
  Sender: FDA-Public Use
  Company Number: AU-B.I. PHARMACEUTICALS,INC./RIDGEFIELD-2011-AU-00983AU

PATIENT
  Sex: Male
  Weight: 88 kg

DRUGS (4)
  1. PERINDOPRIL ERBUMINE [Concomitant]
     Dosage: 2.5 MG
  2. CRESTOR [Concomitant]
     Dosage: 10 MG
  3. SOTALOL HYDROCHLORIDE [Concomitant]
     Dosage: 80 MG
  4. PRADAXA [Suspect]
     Indication: ATRIAL FIBRILLATION
     Dosage: 300 MG
     Dates: start: 20110623, end: 20110816

REACTIONS (2)
  - OEDEMA PERIPHERAL [None]
  - DEEP VEIN THROMBOSIS [None]
